FAERS Safety Report 5898187-7 (Version None)
Quarter: 2008Q3

REPORT INFORMATION
  Report Type: 
  Country: None (occurrence: None)
  Receive Date: 20080908
  Receipt Date: 20080422
  Transmission Date: 20090109
  Serious: Yes (Other)
  Sender: FDA-Public Use
  Company Number: PHEH2008US03689

PATIENT
  Age: 70 Year
  Sex: Male

DRUGS (3)
  1. DIOVAN [Suspect]
     Indication: CORONARY ARTERY DISEASE
     Dosage: 80 MG, QD, ORAL
     Route: 048
     Dates: start: 20070101
  2. PRAVACHOL [Concomitant]
  3. ASPIRIN [Concomitant]

REACTIONS (2)
  - PLATELET COUNT DECREASED [None]
  - THROMBOCYTOPENIA [None]
